FAERS Safety Report 4716462-6 (Version None)
Quarter: 2005Q3

REPORT INFORMATION
  Report Type: 
  Country: None (occurrence: None)
  Receive Date: 20050714
  Receipt Date: 20050705
  Transmission Date: 20060218
  Serious: Yes (Life-Threatening)
  Sender: FDA-Public Use
  Company Number: ATO-05-0220

PATIENT
  Age: 63 Year
  Sex: Male

DRUGS (18)
  1. TRISENOX [Suspect]
     Indication: ACUTE PROMYELOCYTIC LEUKAEMIA
     Dosage: SEE IMAGE
     Route: 042
     Dates: start: 20050418, end: 20050425
  2. TRISENOX [Suspect]
     Indication: ACUTE PROMYELOCYTIC LEUKAEMIA
     Dosage: SEE IMAGE
     Route: 042
     Dates: start: 20050507, end: 20050512
  3. DAUNORUBICIN HYDROCHLORIDE [Concomitant]
  4. ITRACONAZOLE [Concomitant]
  5. SULFAMETHOXAZOLE [Concomitant]
  6. DALTEPARIN SODIUM [Concomitant]
  7. METHOTREXATE [Concomitant]
  8. CYTARABINE [Concomitant]
  9. DEXAMETHASONE SODIUM PHOSPHATE [Concomitant]
  10. FAMOTIDINE [Concomitant]
  11. MAGNESIUM OXIDE [Concomitant]
  12. DIAZEPAM [Concomitant]
  13. CALCIUM GLUCONATE [Concomitant]
  14. HYDROXYZINE HCL [Concomitant]
  15. METOCLOPRAMIDE [Concomitant]
  16. HALOPERIDOL [Concomitant]
  17. FLUNITRAZEPAM [Concomitant]
  18. CEFPIROME SULFATE [Concomitant]

REACTIONS (8)
  - DEPRESSED LEVEL OF CONSCIOUSNESS [None]
  - DISSEMINATED INTRAVASCULAR COAGULATION [None]
  - ELECTROCARDIOGRAM QT CORRECTED INTERVAL PROLONGED [None]
  - HYPOCALCAEMIA [None]
  - HYPONATRAEMIA [None]
  - LEUKOCYTOSIS [None]
  - NERVOUS SYSTEM DISORDER [None]
  - RESTLESSNESS [None]
